FAERS Safety Report 11324182 (Version 2)
Quarter: 2015Q3

REPORT INFORMATION
  Report Type: Spontaneous
  Country: CN (occurrence: CN)
  Receive Date: 20150730
  Receipt Date: 20150806
  Transmission Date: 20151125
  Serious: Yes (Hospitalization, Other)
  Sender: FDA-Public Use
  Company Number: CN-ASTRAZENECA-2015SE72442

PATIENT
  Age: 53 Year
  Sex: Female

DRUGS (5)
  1. TIBET MEDICINE [Concomitant]
     Dates: start: 201507
  2. IRESSA [Suspect]
     Active Substance: GEFITINIB
     Route: 048
  3. REN QING CHANG JUE [Concomitant]
     Dates: start: 201206
  4. IRESSA [Suspect]
     Active Substance: GEFITINIB
     Route: 048
     Dates: start: 20150503, end: 20150524
  5. TRADICIONAL CHINESE MEDICINE [Concomitant]
     Dosage: 1 PLASTIC BAG BID (ORALLY USE AFTER MEAL)
     Route: 048

REACTIONS (8)
  - Productive cough [Recovered/Resolved]
  - Melaena [Recovered/Resolved]
  - Interstitial lung disease [Unknown]
  - Diarrhoea [Recovered/Resolved]
  - Malignant neoplasm progression [Recovering/Resolving]
  - Vomiting [Recovered/Resolved]
  - Hilar lymphadenopathy [Unknown]
  - Intentional product misuse [Unknown]

NARRATIVE: CASE EVENT DATE: 201208
